FAERS Safety Report 23623819 (Version 1)
Quarter: 2024Q1

REPORT INFORMATION
  Report Type: Report from Study
  Country: US (occurrence: US)
  Receive Date: 20240312
  Receipt Date: 20240312
  Transmission Date: 20240410
  Serious: Yes (Hospitalization, Other)
  Sender: FDA-Public Use
  Company Number: US-002147023-NVSC2024US026375

PATIENT
  Sex: Female
  Weight: 79 kg

DRUGS (1)
  1. PIQRAY [Suspect]
     Active Substance: ALPELISIB
     Indication: Breast cancer
     Dosage: 300 MG, QD
     Route: 048
     Dates: start: 20231206, end: 20240226

REACTIONS (10)
  - Blood glucose increased [Unknown]
  - Asthenia [Unknown]
  - Feeling cold [Unknown]
  - Tremor [Unknown]
  - Disorientation [Recovering/Resolving]
  - Hypovolaemic shock [Unknown]
  - Renal disorder [Unknown]
  - Dizziness [Unknown]
  - Diarrhoea [Unknown]
  - Hyperglycaemia [Unknown]
